FAERS Safety Report 5144422-2 (Version None)
Quarter: 2006Q4

REPORT INFORMATION
  Report Type: 
  Country: None (occurrence: None)
  Receive Date: 20061031
  Receipt Date: 20061019
  Transmission Date: 20070319
  Serious: Yes (Hospitalization)
  Sender: FDA-Public Use
  Company Number: 2006127910

PATIENT
  Age: 47 Year
  Sex: Male
  Weight: 68 kg

DRUGS (5)
  1. SUTENT [Suspect]
     Indication: METASTATIC RENAL CELL CARCINOMA
     Dosage: 37.5 MG (37.5 MG, 1 IN 1 D), ORAL
     Route: 048
     Dates: start: 20060303
  2. EUTIROX (LEVOTHYROXINE) [Concomitant]
  3. HYDROCORTISONE [Concomitant]
  4. ALDACTONE [Concomitant]
  5. LORAZEPAM [Concomitant]

REACTIONS (4)
  - ACUTE PRERENAL FAILURE [None]
  - FLUID INTAKE REDUCED [None]
  - NAUSEA [None]
  - VOMITING [None]
